FAERS Safety Report 8117452-6 (Version None)
Quarter: 2012Q1

REPORT INFORMATION
  Report Type: 
  Country: None (occurrence: None)
  Receive Date: 20120207
  Receipt Date: 20120127
  Transmission Date: 20120608
  Serious: Yes (Hospitalization)
  Sender: FDA-Public Use
  Company Number: US-BIOGENIDEC-2011BI029217

PATIENT
  Age: 50 Year
  Sex: Female

DRUGS (3)
  1. AVONEX [Concomitant]
     Route: 030
     Dates: start: 20011004, end: 20070111
  2. TYSABRI [Suspect]
     Indication: MULTIPLE SCLEROSIS
     Route: 042
     Dates: start: 20101110
  3. AVONEX [Concomitant]
     Indication: MULTIPLE SCLEROSIS
     Route: 030
     Dates: start: 20070604, end: 20090101

REACTIONS (5)
  - GAIT DISTURBANCE [None]
  - FALL [None]
  - BACTERAEMIA [None]
  - ADVERSE DRUG REACTION [None]
  - URINARY TRACT INFECTION [None]
